FAERS Safety Report 18685735 (Version 2)
Quarter: 2021Q1

REPORT INFORMATION
  Report Type: Spontaneous
  Country: FR (occurrence: FR)
  Receive Date: 20201230
  Receipt Date: 20210105
  Transmission Date: 20210419
  Serious: Yes (Other)
  Sender: FDA-Public Use
  Company Number: FR-ENDO PHARMACEUTICALS INC-2020-008051

PATIENT
  Age: 73 Year
  Sex: Female

DRUGS (3)
  1. TRAMADOL HYDROCHLORIDE. [Suspect]
     Active Substance: TRAMADOL HYDROCHLORIDE
     Indication: BACK PAIN
     Dosage: 200 MG, DAILY
     Route: 065
  2. COBALAMIN [Concomitant]
     Active Substance: COBALAMIN
     Indication: PRODUCT USED FOR UNKNOWN INDICATION
  3. TRAMADOL HYDROCHLORIDE. [Suspect]
     Active Substance: TRAMADOL HYDROCHLORIDE
     Dosage: UNDER 50 MG DAILY
     Route: 065

REACTIONS (2)
  - Visual acuity reduced [Recovering/Resolving]
  - Cystoid macular oedema [Recovered/Resolved]
